FAERS Safety Report 8016961-8 (Version None)
Quarter: 2012Q1

REPORT INFORMATION
  Report Type: 
  Country: None (occurrence: None)
  Receive Date: 20120102
  Receipt Date: 20111226
  Transmission Date: 20120608
  Serious: Yes (Hospitalization)
  Sender: FDA-Public Use
  Company Number: PHHY2011VE113196

PATIENT
  Sex: Female

DRUGS (2)
  1. ZOLEDRONOC ACID [Suspect]
     Dosage: 5 MG, , ONCE A YEAR
     Route: 042
     Dates: start: 20110415
  2. ANTIBIOTICS [Concomitant]

REACTIONS (1)
  - WOUND [None]
